FAERS Safety Report 26115948 (Version 1)
Quarter: 2025Q4

REPORT INFORMATION
  Report Type: Spontaneous
  Country: CN (occurrence: CN)
  Receive Date: 20251203
  Receipt Date: 20251203
  Transmission Date: 20260119
  Serious: Yes (Hospitalization)
  Sender: ARGENX BVBA
  Company Number: CN-ARGENX-2025-ARGX-CN016851

PATIENT

DRUGS (4)
  1. EFGARTIGIMOD ALFA [Suspect]
     Active Substance: EFGARTIGIMOD ALFA
     Dosage: 10 MG/KG, MONTHLY
     Route: 042
  2. EFGARTIGIMOD ALFA [Suspect]
     Active Substance: EFGARTIGIMOD ALFA
     Indication: Chronic inflammatory demyelinating polyradiculoneuropathy
     Dosage: 10 MG/KG, 1/WEEK
     Route: 042
  3. MYCOPHENOLATE MOFETIL [Concomitant]
     Active Substance: MYCOPHENOLATE MOFETIL
     Indication: Chronic inflammatory demyelinating polyradiculoneuropathy
     Dosage: 1000 MG, BID
     Route: 065
  4. PREDNISONE [Concomitant]
     Active Substance: PREDNISONE
     Indication: Chronic inflammatory demyelinating polyradiculoneuropathy
     Dosage: 45 MG, DAILY
     Route: 065

REACTIONS (4)
  - Muscular weakness [Recovering/Resolving]
  - Condition aggravated [Unknown]
  - Off label use [Unknown]
  - Drug effective for unapproved indication [Unknown]
